FAERS Safety Report 7637759-6 (Version None)
Quarter: 2011Q3

REPORT INFORMATION
  Report Type: 
  Country: None (occurrence: None)
  Receive Date: 20110727
  Receipt Date: 20110720
  Transmission Date: 20111222
  Serious: Yes (Other)
  Sender: FDA-Public Use
  Company Number: US-ASTRAZENECA-2008UW25025

PATIENT
  Age: 63 Year
  Sex: Male
  Weight: 104.3 kg

DRUGS (6)
  1. FELODIPINE [Concomitant]
     Indication: HYPERTENSION
     Dosage: TAKE ONE TABLET BY MOUTH IN THE MORNING FOR BLOOD PRESSURE
     Route: 048
     Dates: start: 20070403, end: 20080403
  2. SEROQUEL [Suspect]
     Indication: POST-TRAUMATIC STRESS DISORDER
     Route: 048
     Dates: start: 20050622, end: 20070606
  3. FLUOXETINE HYDROCHLORIDE [Concomitant]
     Dosage: 10 MG, ONE CAPSULE BY MOUTH AT BED TIME
     Route: 048
     Dates: start: 20070319, end: 20080319
  4. LEVITRA [Concomitant]
     Dates: start: 20070101
  5. PRAZOSIN HCL [Concomitant]
     Dosage: 2 MG,ONE CAPSULE BY MOUTH AT BED TIME
     Route: 048
     Dates: start: 20070319, end: 20080319
  6. SEROQUEL [Suspect]
     Dosage: 25 MG, ONE HALF TABLET BY MOUTH AT BED TIME
     Route: 048
     Dates: start: 20070319, end: 20080319

REACTIONS (8)
  - VISION CORRECTION OPERATION [None]
  - OBESITY [None]
  - ERECTILE DYSFUNCTION [None]
  - BLOOD TRIGLYCERIDES INCREASED [None]
  - DIABETES MELLITUS [None]
  - BLOOD CHOLESTEROL INCREASED [None]
  - DISABILITY [None]
  - DIABETIC NEUROPATHY [None]
